FAERS Safety Report 5505739-2 (Version None)
Quarter: 2007Q4

REPORT INFORMATION
  Report Type: 
  Country: None (occurrence: None)
  Receive Date: 20071102
  Receipt Date: 20071024
  Transmission Date: 20080405
  Serious: Yes (Other)
  Sender: FDA-Public Use
  Company Number: JP-PFIZER INC-2007087420

PATIENT
  Sex: Male

DRUGS (6)
  1. CELECOX [Suspect]
     Indication: OSTEOARTHRITIS
     Route: 048
     Dates: start: 20070712, end: 20070810
  2. ARICEPT [Concomitant]
     Route: 048
  3. NICHISTATE [Concomitant]
     Route: 048
  4. THYRADIN S [Concomitant]
     Route: 048
  5. MAGNESIUM OXIDE [Concomitant]
     Route: 048
  6. TAMSULOSIN HYDROCHLORIDE [Concomitant]
     Route: 048

REACTIONS (3)
  - ASTHMA [None]
  - CHILLS [None]
  - VIRAL INFECTION [None]
